FAERS Safety Report 8477273-1 (Version None)
Quarter: 2012Q2

REPORT INFORMATION
  Report Type: 
  Country: None (occurrence: None)
  Receive Date: 20120629
  Receipt Date: 20120619
  Transmission Date: 20120825
  Serious: Yes (Other)
  Sender: FDA-Public Use
  Company Number: BR-JNJFOC-20120610484

PATIENT
  Age: 60 Year
  Sex: Female
  Weight: 81 kg

DRUGS (9)
  1. LOSARTAN POTASSIUM [Concomitant]
     Route: 065
  2. METHOTREXATE [Concomitant]
     Dosage: 2 TABLETS OF 2.5 MG ONCE WEEKLY
     Route: 065
  3. REMICADE [Suspect]
     Indication: PRODUCT USED FOR UNKNOWN INDICATION
     Route: 042
  4. AMLODIPINE [Concomitant]
     Indication: HYPERTENSION
     Route: 065
  5. LEVOTHYROXINE SODIUM [Concomitant]
     Indication: HYPOTHYROIDISM
     Route: 065
  6. ENBREL [Suspect]
     Indication: RHEUMATOID ARTHRITIS
     Route: 058
  7. ENBREL [Suspect]
     Route: 058
     Dates: start: 20111020
  8. ALPRAZOLAM [Concomitant]
     Indication: SEDATION
     Dosage: ONCE AT NIGHT
     Route: 065
  9. PREDNISONE [Concomitant]
     Indication: PRODUCT USED FOR UNKNOWN INDICATION
     Route: 065

REACTIONS (5)
  - ALOPECIA [None]
  - PAIN [None]
  - URINARY TRACT INFECTION [None]
  - DENGUE FEVER [None]
  - HERPES ZOSTER [None]
